FAERS Safety Report 5313860-7 (Version None)
Quarter: 2007Q2

REPORT INFORMATION
  Report Type: 
  Country: None (occurrence: None)
  Receive Date: 20070501
  Receipt Date: 20070427
  Transmission Date: 20071010
  Serious: Yes (Hospitalization)
  Sender: FDA-Public Use
  Company Number: FR-GLAXOSMITHKLINE-B0468514A

PATIENT
  Age: 3 Year
  Sex: Female
  Weight: 12 kg

DRUGS (9)
  1. CLAMOXYL [Suspect]
     Route: 048
     Dates: start: 20070327
  2. PREVISCAN [Suspect]
     Dosage: 2MG PER DAY
     Route: 048
     Dates: start: 20070309
  3. FERROSTRANE [Suspect]
     Route: 048
     Dates: start: 20070309
  4. PARACETAMOL [Suspect]
     Route: 048
     Dates: start: 20070309
  5. LACTEOL [Suspect]
     Route: 048
     Dates: start: 20070309
  6. TIORFAN [Concomitant]
     Dates: start: 20070322
  7. FLAGYL [Concomitant]
     Dates: start: 20070322
  8. CODENFAN [Concomitant]
     Dates: start: 20070323
  9. FOLDINE [Concomitant]
     Dates: start: 20070327

REACTIONS (4)
  - BLOOD FIBRINOGEN DECREASED [None]
  - DRUG INTERACTION [None]
  - INTERNATIONAL NORMALISED RATIO ABNORMAL [None]
  - PROTHROMBIN LEVEL ABNORMAL [None]
